FAERS Safety Report 25021940 (Version 1)
Quarter: 2025Q1

REPORT INFORMATION
  Report Type: Spontaneous
  Country: CN (occurrence: CN)
  Receive Date: 20250228
  Receipt Date: 20250228
  Transmission Date: 20250409
  Serious: Yes (Hospitalization)
  Sender: ALEXION PHARMACEUTICALS
  Company Number: CN-ASTRAZENECA-202502CHN018544CN

PATIENT
  Age: 49 Year
  Weight: 80 kg

DRUGS (1)
  1. TICAGRELOR [Suspect]
     Active Substance: TICAGRELOR
     Indication: Coronary artery disease
     Dosage: 180 MILLIGRAM, QD

REACTIONS (1)
  - Breath holding [Recovered/Resolved]
